FAERS Safety Report 18677152 (Version 1)
Quarter: 2020Q4

REPORT INFORMATION
  Report Type: Spontaneous
  Country: BR (occurrence: BR)
  Receive Date: 20201229
  Receipt Date: 20201229
  Transmission Date: 20210114
  Serious: Yes (Other)
  Sender: FDA-Public Use
  Company Number: BR-SAMSUNG BIOEPIS-SB-2020-38219

PATIENT
  Age: 71 Year
  Sex: Male

DRUGS (2)
  1. BRENZYS [Suspect]
     Active Substance: ETANERCEPT
     Indication: PRODUCT USED FOR UNKNOWN INDICATION
     Route: 065
  2. BRENZYS [Suspect]
     Active Substance: ETANERCEPT
     Route: 065

REACTIONS (3)
  - Product use issue [Unknown]
  - Immunosuppression [Unknown]
  - Herpes virus infection [Unknown]
